FAERS Safety Report 4754035-X (Version None)
Quarter: 2005Q3

REPORT INFORMATION
  Report Type: 
  Country: None (occurrence: None)
  Receive Date: 20050826
  Receipt Date: 20050818
  Transmission Date: 20060218
  Serious: Yes (Life-Threatening, Hospitalization, Disabling)
  Sender: FDA-Public Use
  Company Number: 163-20785-04070085

PATIENT
  Age: 22 Year
  Sex: Male

DRUGS (2)
  1. THALOMID [Suspect]
     Indication: BRAIN NEOPLASM MALIGNANT
     Dosage: 1200 MG, DAILY, ORAL
     Route: 048
     Dates: start: 20031208, end: 20040301
  2. TEMOZOLOMIDE (TEMOZOLOMIDE) [Concomitant]

REACTIONS (2)
  - DISEASE PROGRESSION [None]
  - HAEMORRHAGIC STROKE [None]
